FAERS Safety Report 12935347 (Version 1)
Quarter: 2016Q4

REPORT INFORMATION
  Report Type: Spontaneous
  Country: US (occurrence: US)
  Receive Date: 20161114
  Receipt Date: 20161114
  Transmission Date: 20170207
  Serious: No
  Sender: FDA-Public Use
  Company Number: US-JAZZ-2016-US-018592

PATIENT
  Sex: Female

DRUGS (22)
  1. LISINOPRIL + HIDROCLOROTIAZIDA [Concomitant]
     Active Substance: HYDROCHLOROTHIAZIDE\LISINOPRIL
  2. MULTIVITAMINS                      /00116001/ [Concomitant]
  3. XYREM [Suspect]
     Active Substance: SODIUM OXYBATE
     Dosage: DOSE ADJUSTMENTS
     Route: 048
     Dates: start: 200807, end: 201511
  4. ADDERALL [Concomitant]
     Active Substance: AMPHETAMINE ASPARTATE\AMPHETAMINE SULFATE\DEXTROAMPHETAMINE SACCHARATE\DEXTROAMPHETAMINE SULFATE
  5. NITROGLYCERIN. [Concomitant]
     Active Substance: NITROGLYCERIN
  6. CENTRUM PERFORMANCE [Concomitant]
  7. CITALOPRAM [Concomitant]
     Active Substance: CITALOPRAM HYDROBROMIDE
  8. VENTOLIN HFA [Concomitant]
     Active Substance: ALBUTEROL SULFATE
  9. XYREM [Suspect]
     Active Substance: SODIUM OXYBATE
     Indication: NARCOLEPSY
     Dosage: 2.25 G, BID
     Route: 048
     Dates: start: 200210, end: 200411
  10. LORATADINE. [Concomitant]
     Active Substance: LORATADINE
  11. XYREM [Suspect]
     Active Substance: SODIUM OXYBATE
     Dosage: 2.5 G, BID
     Route: 048
     Dates: start: 200612, end: 200807
  12. XYREM [Suspect]
     Active Substance: SODIUM OXYBATE
     Dosage: 2.5 G, BID
     Route: 048
     Dates: start: 201511
  13. ASPIRIN                            /00002701/ [Concomitant]
     Active Substance: ASPIRIN
  14. OMEGA 3 FISH OIL                   /01334101/ [Concomitant]
     Active Substance: FISH OIL
  15. RITALIN [Concomitant]
     Active Substance: METHYLPHENIDATE HYDROCHLORIDE
  16. VITAMIN E                          /00110501/ [Concomitant]
     Active Substance: TOCOPHEROL
  17. CYANOCOBALAMIN. [Concomitant]
     Active Substance: CYANOCOBALAMIN
  18. HYDROCORTISONE BUTYRATE. [Concomitant]
     Active Substance: HYDROCORTISONE BUTYRATE
  19. LEVOTHYROXINE. [Concomitant]
     Active Substance: LEVOTHYROXINE
  20. XYREM [Suspect]
     Active Substance: SODIUM OXYBATE
     Indication: CATAPLEXY
     Dosage: 4 G, BID
     Route: 048
     Dates: start: 200411, end: 2006
  21. PENICILLIN VK [Concomitant]
     Active Substance: PENICILLIN V POTASSIUM
  22. FISH OIL CONCENTRATE [Concomitant]
     Active Substance: FISH OIL

REACTIONS (3)
  - Fatigue [Not Recovered/Not Resolved]
  - Arthritis [Not Recovered/Not Resolved]
  - Alopecia [Not Recovered/Not Resolved]
